FAERS Safety Report 16186998 (Version 3)
Quarter: 2019Q2

REPORT INFORMATION
  Report Type: Report from Study
  Country: US (occurrence: US)
  Receive Date: 20190411
  Receipt Date: 20190423
  Transmission Date: 20190711
  Serious: Yes (Death, Hospitalization)
  Sender: FDA-Public Use
  Company Number: PHHO2019US003813

PATIENT
  Age: 35 Year
  Sex: Female
  Weight: 71.4 kg

DRUGS (2)
  1. KISQALI [Suspect]
     Active Substance: RIBOCICLIB
     Indication: PANCREATIC CARCINOMA METASTATIC
     Dosage: 300 MG, QD 21/28 DAYS
     Route: 048
     Dates: start: 20190305, end: 20190331
  2. AFINITOR [Suspect]
     Active Substance: EVEROLIMUS
     Indication: PANCREATIC CARCINOMA METASTATIC
     Dosage: 2.5 MG, QD, 28/28 DAYS
     Route: 048
     Dates: start: 20190305, end: 20190331

REACTIONS (4)
  - Failure to thrive [Unknown]
  - Respiratory failure [Fatal]
  - Chest pain [Unknown]
  - Thrombocytopenia [Unknown]

NARRATIVE: CASE EVENT DATE: 20190401
